FAERS Safety Report 5810470-X (Version None)
Quarter: 2008Q3

REPORT INFORMATION
  Report Type: 
  Country: None (occurrence: None)
  Receive Date: 20080709
  Receipt Date: 20080627
  Transmission Date: 20090109
  Serious: Yes (Other)
  Sender: FDA-Public Use
  Company Number: 2008AP001621

PATIENT
  Sex: Male

DRUGS (8)
  1. PAROXETINE HCL [Suspect]
     Indication: POST-TRAUMATIC STRESS DISORDER
     Dosage: 20 MG; QD
     Dates: start: 19990201
  2. PAROXETINE HCL [Suspect]
     Indication: POST-TRAUMATIC STRESS DISORDER
     Dosage: 20 MG; QD
     Dates: start: 20030101
  3. CARBAMAZEPINE [Concomitant]
  4. DIAZEPAM [Concomitant]
  5. PHENYTOIN SODIUM [Concomitant]
  6. ESCITALOPRAM OXALATE [Concomitant]
  7. TRAMADOL HCL [Concomitant]
  8. VENLAFAXINE HCL [Concomitant]

REACTIONS (18)
  - ABNORMAL DREAMS [None]
  - ANGER [None]
  - BRUXISM [None]
  - CONVULSION [None]
  - DEHYDRATION [None]
  - DISSOCIATION [None]
  - DISTURBANCE IN ATTENTION [None]
  - DRUG INEFFECTIVE [None]
  - HEAD INJURY [None]
  - MEMORY IMPAIRMENT [None]
  - MOOD SWINGS [None]
  - MUSCLE TWITCHING [None]
  - NAUSEA [None]
  - OVERDOSE [None]
  - PANIC ATTACK [None]
  - RECTAL HAEMORRHAGE [None]
  - SUICIDAL IDEATION [None]
  - TINNITUS [None]
